FAERS Safety Report 8840947 (Version 3)
Quarter: 2013Q1

REPORT INFORMATION
  Report Type: Report from Study
  Country: JP (occurrence: JP)
  Receive Date: 20121015
  Receipt Date: 20130201
  Transmission Date: 20140127
  Serious: Yes (Other)
  Sender: FDA-Public Use
  Company Number: JP-VERTEX PHARMACEUTICAL INC.-AE-2012-009618

PATIENT
  Age: 63 Year
  Sex: Male

DRUGS (14)
  1. VX-950 (TELAPREVIR) [Suspect]
     Indication: CHRONIC HEPATITIS C
     Dosage: 2250 MG, QD
     Route: 048
     Dates: start: 20120404, end: 20120529
  2. VX-950 (TELAPREVIR) [Suspect]
     Dosage: 1500 MG, QD
     Route: 048
     Dates: start: 20120530, end: 20120531
  3. REBETOL [Suspect]
     Indication: CHRONIC HEPATITIS C
     Dosage: 600 MG, QD
     Route: 048
     Dates: start: 20120404, end: 20120508
  4. REBETOL [Suspect]
     Dosage: 400 MG, QD
     Route: 048
     Dates: start: 20120509, end: 20120522
  5. REBETOL [Suspect]
     Dosage: 200 MG, QD
     Route: 048
     Dates: start: 20120523, end: 20120531
  6. PEGINTRON [Suspect]
     Indication: CHRONIC HEPATITIS C
     Dosage: 1.5 ?G/KG, QW
     Route: 058
     Dates: start: 20120404, end: 20120530
  7. WARFARIN [Concomitant]
     Dosage: 2.5 MG, QD
     Route: 048
  8. DIGOSIN [Concomitant]
     Dosage: 0.125 MG, QD
     Route: 048
  9. LENDORMIN [Concomitant]
     Dosage: 0.25 MG, QD
     Route: 048
  10. XYZAL [Concomitant]
     Dosage: 5 MG, QD
     Route: 048
  11. SELBEX [Concomitant]
     Dosage: 150 MG, QD
     Route: 048
  12. SELBEX [Concomitant]
     Dosage: 150 MG, QD
     Route: 048
  13. GASTER D [Concomitant]
     Dosage: 20 MG, QD
     Route: 048
     Dates: start: 20120425
  14. ALESION [Concomitant]
     Dosage: 20 MG, QD
     Route: 048
     Dates: start: 20120509

REACTIONS (2)
  - Optic neuropathy [Recovered/Resolved]
  - Anaemia [Recovered/Resolved]
